FAERS Safety Report 6669307-1 (Version None)
Quarter: 2010Q2

REPORT INFORMATION
  Report Type: 
  Country: None (occurrence: None)
  Receive Date: 20100406
  Receipt Date: 20100330
  Transmission Date: 20101027
  Serious: Yes (Other)
  Sender: FDA-Public Use
  Company Number: US-SANOFI-AVENTIS-2010SA019365

PATIENT
  Age: 72 Year
  Sex: Male

DRUGS (8)
  1. RILUTEK [Interacting]
     Indication: AMYOTROPHIC LATERAL SCLEROSIS
     Route: 048
     Dates: start: 20091001, end: 20091101
  2. RILUTEK [Interacting]
     Route: 048
     Dates: start: 20091201
  3. RILUTEK [Interacting]
     Route: 048
     Dates: start: 20100201
  4. METOPROLOL TARTRATE [Interacting]
     Route: 048
  5. DIGOXIN [Suspect]
     Route: 048
  6. CARDIZEM [Interacting]
     Route: 048
  7. COUMADIN [Interacting]
     Dosage: 5 MG AND 2.5 MG ALTERNATING EVERY OTHER DAY
     Route: 048
  8. ZANAFLEX [Concomitant]
     Route: 048

REACTIONS (3)
  - DRUG INTERACTION [None]
  - HEART RATE DECREASED [None]
  - HYPOTENSION [None]
